FAERS Safety Report 9486875 (Version 2)
Quarter: 2013Q3

REPORT INFORMATION
  Report Type: Spontaneous
  Country: US (occurrence: US)
  Receive Date: 20130829
  Receipt Date: 20130829
  Transmission Date: 20140515
  Serious: Yes (Hospitalization)
  Sender: FDA-Public Use
  Company Number: US-GILEAD-2013-0080244

PATIENT
  Sex: Male

DRUGS (3)
  1. LETAIRIS [Suspect]
     Indication: PULMONARY ARTERIAL HYPERTENSION
     Dosage: 5 MG, QD
  2. LETAIRIS [Suspect]
     Indication: DIASTOLIC DYSFUNCTION
  3. SILDENAFIL CITRATE [Concomitant]

REACTIONS (2)
  - Gout [Unknown]
  - Clostridium difficile infection [Unknown]
